FAERS Safety Report 24346510 (Version 1)
Quarter: 2024Q3

REPORT INFORMATION
  Report Type: Report from Study
  Country: CH (occurrence: CH)
  Receive Date: 20240921
  Receipt Date: 20240921
  Transmission Date: 20241017
  Serious: Yes (Other)
  Sender: ABBVIE
  Company Number: CH-ABBVIE-5930027

PATIENT
  Sex: Male

DRUGS (4)
  1. CARBIDOPA\LEVODOPA [Suspect]
     Active Substance: CARBIDOPA\LEVODOPA
     Indication: Parkinson^s disease
     Dosage: FREQUENCY TEXT: 24H THERAPY
     Route: 050
     Dates: start: 20231114
  2. CARBIDOPA\LEVODOPA [Suspect]
     Active Substance: CARBIDOPA\LEVODOPA
     Dosage: MD: 6.0ML, CRD: 3.7ML/H, ED: 1.00ML, CRN: 2.0ML/H?FREQUENCY TEXT: 24H THERAPY
     Route: 050
     Dates: start: 20240123, end: 20240127
  3. CARBIDOPA\LEVODOPA [Suspect]
     Active Substance: CARBIDOPA\LEVODOPA
     Dosage: MD: 6.0ML, CRD: 3.7ML/H, ED: 2.00ML, CRN: 2.0ML/H?FREQUENCY TEXT: 24H THERAPY
     Route: 050
     Dates: start: 20240716
  4. CARBIDOPA\LEVODOPA [Suspect]
     Active Substance: CARBIDOPA\LEVODOPA
     Dosage: MD: 6.0ML, CRD: 3.7ML/H, ED: 2.00ML, CRN: 2.0ML/H?FREQUENCY TEXT: 24H THERAPY
     Route: 050
     Dates: start: 20240127, end: 20240716

REACTIONS (1)
  - Cataract [Not Recovered/Not Resolved]

NARRATIVE: CASE EVENT DATE: 20240101
